FAERS Safety Report 15975572 (Version 1)
Quarter: 2019Q1

REPORT INFORMATION
  Report Type: Spontaneous
  Country: US (occurrence: US)
  Receive Date: 20190218
  Receipt Date: 20190218
  Transmission Date: 20190418
  Serious: No
  Sender: FDA-Public Use
  Company Number: US-TEVA-2019-US-1013255

PATIENT
  Age: 56 Year
  Sex: Male
  Weight: 126 kg

DRUGS (9)
  1. SYMBICORT [Concomitant]
     Active Substance: BUDESONIDE\FORMOTEROL FUMARATE DIHYDRATE
  2. SINGULAIR [Concomitant]
     Active Substance: MONTELUKAST SODIUM
  3. ZYRTEC [Concomitant]
     Active Substance: CETIRIZINE HYDROCHLORIDE
  4. DEXAMETHASONE. [Concomitant]
     Active Substance: DEXAMETHASONE
     Dates: start: 20190102
  5. CLINDAMYCIN. [Concomitant]
     Active Substance: CLINDAMYCIN
     Dates: start: 20190102
  6. CINQAIR [Suspect]
     Active Substance: RESLIZUMAB
     Dosage: ON 09-JAN-2019 PATIENT RECEIVED HIS THIRD INJECTION OF CINQAIR
     Route: 042
     Dates: start: 201811
  7. EPIPEN [Concomitant]
     Active Substance: EPINEPHRINE
  8. ALBUTEROL. [Concomitant]
     Active Substance: ALBUTEROL
  9. ACETAMINOPHEN. [Concomitant]
     Active Substance: ACETAMINOPHEN

REACTIONS (1)
  - Rash [Recovered/Resolved]

NARRATIVE: CASE EVENT DATE: 20190111
